FAERS Safety Report 6964446-X (Version None)
Quarter: 2010Q3

REPORT INFORMATION
  Report Type: 
  Country: None (occurrence: None)
  Receive Date: 20100903
  Receipt Date: 20100823
  Transmission Date: 20110219
  Serious: Yes (Other)
  Sender: FDA-Public Use
  Company Number: JP-PFIZER INC-2010110061

PATIENT
  Age: 67 Year
  Sex: Male

DRUGS (1)
  1. LIPITOR [Suspect]
     Dosage: 10 MG, 1X/DAY/UID
     Route: 048
     Dates: start: 20100510, end: 20100822

REACTIONS (3)
  - HAEMATURIA [None]
  - NEPHROLITHIASIS [None]
  - RENAL IMPAIRMENT [None]
